FAERS Safety Report 6346751-3 (Version None)
Quarter: 2009Q3

REPORT INFORMATION
  Report Type: 
  Country: None (occurrence: None)
  Receive Date: 20090904
  Receipt Date: 20090821
  Transmission Date: 20100115
  Serious: Yes (Hospitalization)
  Sender: FDA-Public Use
  Company Number: CERZ-1000761

PATIENT
  Age: 87 Year
  Sex: Female
  Weight: 45 kg

DRUGS (6)
  1. CEREZYME [Suspect]
     Indication: GAUCHER'S DISEASE
     Dosage: 800 U, Q4W, INTRAVENOUS
     Route: 042
     Dates: end: 20010101
  2. CEREZYME [Suspect]
     Indication: GAUCHER'S DISEASE
     Dosage: 800 U, Q4W, INTRAVENOUS
     Route: 042
     Dates: start: 20081001
  3. FOSAMAX [Concomitant]
  4. VITAMIN D [Concomitant]
  5. LEVOTHYROXNE (LEVOTHYROXINE SODIUM) [Concomitant]
  6. COLECALCIFEROL (COLECALCIFEROL) [Concomitant]

REACTIONS (4)
  - FALL [None]
  - FEMORAL NECK FRACTURE [None]
  - POOR VENOUS ACCESS [None]
  - RADIUS FRACTURE [None]
